FAERS Safety Report 8325659-8 (Version None)
Quarter: 2012Q2

REPORT INFORMATION
  Report Type: 
  Country: None (occurrence: None)
  Receive Date: 20120427
  Receipt Date: 20120425
  Transmission Date: 20120825
  Serious: Yes (Other)
  Sender: FDA-Public Use
  Company Number: ADR-2011-10227

PATIENT
  Sex: Male

DRUGS (1)
  1. LIORESAL [Suspect]
     Indication: MUSCLE SPASTICITY
     Dosage: 210 MCG, DAILY, INTRATH
     Route: 037

REACTIONS (2)
  - INCISION SITE COMPLICATION [None]
  - IMPAIRED HEALING [None]
